FAERS Safety Report 25085148 (Version 1)
Quarter: 2025Q1

REPORT INFORMATION
  Report Type: Spontaneous
  Country: GB (occurrence: GB)
  Receive Date: 20250317
  Receipt Date: 20250317
  Transmission Date: 20250408
  Serious: Yes (Hospitalization, Other)
  Sender: MERZ
  Company Number: GB-ACORDA THERAPEUTICS IRELAND LIMITED-ACO_176908_2025

PATIENT

DRUGS (1)
  1. DALFAMPRIDINE [Suspect]
     Active Substance: DALFAMPRIDINE
     Indication: Multiple sclerosis
     Dosage: 10 MILLIGRAM, BID
     Route: 048

REACTIONS (2)
  - Myocardial infarction [Unknown]
  - Seizure [Unknown]

NARRATIVE: CASE EVENT DATE: 20250120
